FAERS Safety Report 9499440 (Version 1)
Quarter: 2013Q1

REPORT INFORMATION
  Report Type: Spontaneous
  Country: US (occurrence: None)
  Receive Date: 20130107
  Receipt Date: 20130107
  Transmission Date: 20140127
  Serious: No
  Sender: FDA-Public Use
  Company Number: PHEH2012US022067

PATIENT
  Age: 37 Year
  Sex: Female
  Weight: 79.4 kg

DRUGS (2)
  1. GILENYA [Suspect]
     Route: 048
     Dates: start: 20121107
  2. CONTRACEPTIVES NOS (NO INGREDIENTS/SUBSTANCES) [Concomitant]

REACTIONS (2)
  - Myalgia [None]
  - Poor quality sleep [None]
